FAERS Safety Report 10043247 (Version 1)
Quarter: 2014Q1

REPORT INFORMATION
  Report Type: Spontaneous
  Country: US (occurrence: None)
  Receive Date: 20140327
  Receipt Date: 20140327
  Transmission Date: 20141002
  Serious: Yes (Other)
  Sender: FDA-Public Use
  Company Number: None

PATIENT
  Age: 61 Year
  Sex: Female
  Weight: 112.04 kg

DRUGS (6)
  1. CEFEPIME [Suspect]
     Indication: PSEUDOMONAS INFECTION
     Dates: start: 20140219, end: 20140227
  2. CEFEPIME [Suspect]
     Indication: LUNG INFECTION
     Dates: start: 20140219, end: 20140227
  3. BENICAR [Concomitant]
  4. BUMETANIDE [Concomitant]
  5. CALCITONIN [Concomitant]
  6. CARVEDILOL [Concomitant]

REACTIONS (4)
  - Diarrhoea [None]
  - Dyskinesia [None]
  - Asthenia [None]
  - Depressed level of consciousness [None]
